FAERS Safety Report 6655257-3 (Version None)
Quarter: 2010Q1

REPORT INFORMATION
  Report Type: 
  Country: None (occurrence: None)
  Receive Date: 20100329
  Receipt Date: 20100324
  Transmission Date: 20100710
  Serious: Yes (Other)
  Sender: FDA-Public Use
  Company Number: BR-BRISTOL-MYERS SQUIBB COMPANY-14998371

PATIENT
  Age: 40 Year
  Sex: Male

DRUGS (3)
  1. REYATAZ [Suspect]
     Indication: HIV INFECTION
     Dosage: AT FIRST TAKEN 300MG
     Route: 048
     Dates: start: 20090306
  2. RITONAVIR [Suspect]
  3. BIOVIR [Suspect]

REACTIONS (1)
  - GASTRITIS HAEMORRHAGIC [None]
